FAERS Safety Report 7119709-4 (Version None)
Quarter: 2010Q4

REPORT INFORMATION
  Report Type: 
  Country: None (occurrence: None)
  Receive Date: 20101115
  Receipt Date: 20101029
  Transmission Date: 20110411
  Serious: Yes (Death, Hospitalization)
  Sender: FDA-Public Use
  Company Number: DSA_44209_2010

PATIENT
  Age: 39 Year
  Sex: Male

DRUGS (5)
  1. ENALAPRIL MALEATE [Suspect]
     Indication: HYPERTENSION
     Dosage: (20 MG QID ORAL)
     Route: 048
     Dates: start: 20090301
  2. INFLIXIMAB [Concomitant]
  3. SALAZOPYRIN [Concomitant]
  4. SERTRALIN HEXAL [Concomitant]
  5. IMOVANE [Concomitant]

REACTIONS (2)
  - COLITIS ULCERATIVE [None]
  - CONDITION AGGRAVATED [None]
